FAERS Safety Report 7306412-0 (Version None)
Quarter: 2011Q1

REPORT INFORMATION
  Report Type: 
  Country: None (occurrence: None)
  Receive Date: 20110222
  Receipt Date: 20110215
  Transmission Date: 20110831
  Serious: Yes (Other)
  Sender: FDA-Public Use
  Company Number: US-PFIZER INC-2010154409

PATIENT
  Sex: Male

DRUGS (3)
  1. TRILEPTAL [Concomitant]
     Dosage: 90 MG, UNK
     Dates: start: 20091210
  2. GEODON [Suspect]
     Indication: BIPOLAR DISORDER
     Dosage: 160 MG/DAY
     Route: 048
     Dates: start: 20101104, end: 20101118
  3. XANAX [Concomitant]
     Dosage: 1 MG, 2X/DAY
     Dates: start: 20090903

REACTIONS (1)
  - NOCTURNAL DYSPNOEA [None]
